FAERS Safety Report 23701927 (Version 1)
Quarter: 2024Q2

REPORT INFORMATION
  Report Type: Spontaneous
  Country: US (occurrence: None)
  Receive Date: 20240402
  Receipt Date: 20240402
  Transmission Date: 20240716
  Serious: No
  Sender: FDA-Public Use
  Company Number: None

PATIENT
  Age: 66 Year
  Sex: Female
  Weight: 52.5 kg

DRUGS (1)
  1. MIRCERA [Suspect]
     Active Substance: METHOXY POLYETHYLENE GLYCOL-EPOETIN BETA
     Indication: Anaemia
     Dates: start: 20240112, end: 20240318

REACTIONS (5)
  - Unresponsive to stimuli [None]
  - Apnoea [None]
  - Blood glucose increased [None]
  - Lethargy [None]
  - Dialysis [None]

NARRATIVE: CASE EVENT DATE: 20240318
